FAERS Safety Report 16158614 (Version 2)
Quarter: 2019Q2

REPORT INFORMATION
  Report Type: Spontaneous
  Country: US (occurrence: US)
  Receive Date: 20190404
  Receipt Date: 20190530
  Transmission Date: 20190711
  Serious: Yes (Hospitalization)
  Sender: FDA-Public Use
  Company Number: US-PARI RESPIRATORY EQUIPMENT, INC.-2019PAR00024

PATIENT
  Sex: Female
  Weight: 51.25 kg

DRUGS (13)
  1. SYMDEKO [Concomitant]
     Active Substance: IVACAFTOR\TEZACAFTOR
  2. VITAMIN D [Concomitant]
     Active Substance: VITAMIN D NOS
  3. AQUADEKS [Concomitant]
     Active Substance: MINERALS\VITAMINS
  4. ALBUTEROL SULFATE. [Concomitant]
     Active Substance: ALBUTEROL SULFATE
  5. PULMOZYME [Concomitant]
     Active Substance: DORNASE ALFA
  6. KITABIS PAK [Suspect]
     Active Substance: TOBRAMYCIN
     Indication: CYSTIC FIBROSIS
     Dosage: 300 MG, 2X/DAY
     Dates: start: 2016
  7. KITABIS PAK [Suspect]
     Active Substance: TOBRAMYCIN
     Indication: BRONCHIECTASIS
     Dosage: 300 MG, 2X/DAY (28 DAYS ON AND 28 DAYS OFF)
  8. VITAMIN K [Concomitant]
     Active Substance: PHYTONADIONE
  9. KITABIS PAK [Suspect]
     Active Substance: TOBRAMYCIN
     Indication: PANCREATIC DISORDER
  10. FLUCONAZOLE. [Concomitant]
     Active Substance: FLUCONAZOLE
  11. SINGULAIR [Concomitant]
     Active Substance: MONTELUKAST SODIUM
     Dosage: UNK MG
  12. LEXAPRO [Concomitant]
     Active Substance: ESCITALOPRAM OXALATE
  13. OMEPRAZOLE. [Concomitant]
     Active Substance: OMEPRAZOLE

REACTIONS (7)
  - Unevaluable event [Recovering/Resolving]
  - Cystic fibrosis [Recovered/Resolved]
  - Platelet count decreased [Recovered/Resolved]
  - Infection [Unknown]
  - Fatigue [Unknown]
  - Sinus disorder [Unknown]
  - White blood cell count decreased [Recovered/Resolved]

NARRATIVE: CASE EVENT DATE: 2019
